FAERS Safety Report 14892485 (Version 3)
Quarter: 2018Q2

REPORT INFORMATION
  Report Type: Report from Study
  Country: US (occurrence: US)
  Receive Date: 20180514
  Receipt Date: 20180627
  Transmission Date: 20180711
  Serious: Yes (Other)
  Sender: FDA-Public Use
  Company Number: US-PFIZER INC-2018157390

PATIENT
  Age: 51 Year
  Sex: Female

DRUGS (1)
  1. IBRANCE [Suspect]
     Active Substance: PALBOCICLIB
     Indication: BREAST CANCER FEMALE
     Dosage: 125 MG, CYCLIC (21 DAYS ON, 7 DAYS OFF)
     Route: 048
     Dates: start: 20180330

REACTIONS (9)
  - Hypoaesthesia [Not Recovered/Not Resolved]
  - Upper respiratory tract infection [Recovered/Resolved]
  - Stomatitis [Recovering/Resolving]
  - Fatigue [Recovering/Resolving]
  - Arthralgia [Unknown]
  - Neuropathy peripheral [Recovering/Resolving]
  - Alopecia [Unknown]
  - White blood cell count decreased [Recovering/Resolving]
  - Neoplasm progression [Unknown]

NARRATIVE: CASE EVENT DATE: 2018
